FAERS Safety Report 19825810 (Version 6)
Quarter: 2022Q1

REPORT INFORMATION
  Report Type: Spontaneous
  Country: US (occurrence: US)
  Receive Date: 20210914
  Receipt Date: 20220301
  Transmission Date: 20220424
  Serious: No
  Sender: FDA-Public Use
  Company Number: US-GLAXOSMITHKLINE-US2021AMR191392

PATIENT
  Age: 75 Year
  Sex: Female

DRUGS (2)
  1. ZEJULA [Suspect]
     Active Substance: NIRAPARIB
     Indication: Ovarian cancer
     Dosage: 200 MG, QD
     Dates: start: 20210825
  2. ZEJULA [Suspect]
     Active Substance: NIRAPARIB
     Dosage: 100 MG, QD
     Dates: start: 2021

REACTIONS (10)
  - Nausea [Not Recovered/Not Resolved]
  - Abdominal pain [Unknown]
  - Decreased appetite [Not Recovered/Not Resolved]
  - Condition aggravated [Recovering/Resolving]
  - Taste disorder [Recovering/Resolving]
  - Confusional state [Recovering/Resolving]
  - Feeling abnormal [Recovering/Resolving]
  - Retching [Unknown]
  - Weight decreased [Unknown]
  - Adverse drug reaction [Unknown]

NARRATIVE: CASE EVENT DATE: 20210801
